FAERS Safety Report 16715264 (Version 1)
Quarter: 2019Q4

REPORT INFORMATION
  Report Type: Spontaneous
  Country: US (occurrence: US)
  Receive Date: 20190816
  Receipt Date: 20190816
  Transmission Date: 20200122
  Serious: Yes (Other)
  Sender: FDA-Public Use
  Company Number: None

PATIENT
  Age: 28 Year
  Sex: Female
  Weight: 60.75 kg

DRUGS (6)
  1. PROPRANOLOL [Suspect]
     Active Substance: PROPRANOLOL HYDROCHLORIDE
     Indication: ANXIETY
     Route: 048
     Dates: start: 20190806, end: 20190810
  2. HYDROXYZINE [Concomitant]
     Active Substance: HYDROXYZINE HYDROCHLORIDE
  3. VYVANSE [Concomitant]
     Active Substance: LISDEXAMFETAMINE DIMESYLATE
  4. LEVONORGESTREL. [Concomitant]
     Active Substance: LEVONORGESTREL
  5. LAMOTRIGINE. [Concomitant]
     Active Substance: LAMOTRIGINE
  6. ALPROZOLAM [Concomitant]
     Active Substance: ALPRAZOLAM

REACTIONS (3)
  - Amnesia [None]
  - Feeling abnormal [None]
  - Feeling drunk [None]

NARRATIVE: CASE EVENT DATE: 20190808
